FAERS Safety Report 9395100 (Version 3)
Quarter: 2013Q4

REPORT INFORMATION
  Report Type: Report from Study
  Country: DE (occurrence: DE)
  Receive Date: 20130711
  Receipt Date: 20131003
  Transmission Date: 20140711
  Serious: Yes (Hospitalization)
  Sender: FDA-Public Use
  Company Number: DE-PFIZER INC-2013200969

PATIENT
  Age: 68 Year
  Sex: Female
  Weight: 89 kg

DRUGS (5)
  1. AMLODIPINE BESILATE [Suspect]
     Indication: HYPERTENSION
     Dosage: 5 MG, UNK
     Dates: start: 20080423, end: 20121113
  2. AMLODIPINE BESILATE [Suspect]
     Dosage: 10 MG, UNK
     Dates: start: 20121113
  3. BISOPROLOL FUMARATE [Suspect]
     Indication: HYPERTENSION
     Dosage: 5 MG, UNK
     Dates: start: 20080423, end: 20130222
  4. METFORMIN, VILDAGLIPTIN [Suspect]
     Indication: DIABETES MELLITUS
     Dosage: 2000 MG/100 MG DAILY
     Dates: start: 20121002
  5. L-THYROXIN [Concomitant]
     Indication: HYPOTHYROIDISM
     Dosage: 125 UG, UNK
     Dates: start: 19941110

REACTIONS (5)
  - Angina unstable [Recovered/Resolved]
  - Atrial fibrillation [Recovered/Resolved]
  - Palpitations [Unknown]
  - Dyspnoea [Unknown]
  - Chest discomfort [Unknown]
